FAERS Safety Report 16200246 (Version 1)
Quarter: 2019Q2

REPORT INFORMATION
  Report Type: Spontaneous
  Country: ES (occurrence: ES)
  Receive Date: 20190416
  Receipt Date: 20190416
  Transmission Date: 20190711
  Serious: Yes (Other)
  Sender: FDA-Public Use
  Company Number: ES-ALLERGAN-1916275US

PATIENT
  Sex: Female
  Weight: 62 kg

DRUGS (1)
  1. RISEDRONATE SODIUM - BP [Suspect]
     Active Substance: RISEDRONATE SODIUM
     Indication: OSTEOPOROSIS
     Dosage: 150 MG, Q MONTH
     Route: 048
     Dates: start: 20190301, end: 20190302

REACTIONS (2)
  - Dyspepsia [Recovering/Resolving]
  - Scleritis [Recovered/Resolved]

NARRATIVE: CASE EVENT DATE: 20190302
